FAERS Safety Report 18172243 (Version 1)
Quarter: 2020Q3

REPORT INFORMATION
  Report Type: Spontaneous
  Country: GB (occurrence: GB)
  Receive Date: 20200819
  Receipt Date: 20200819
  Transmission Date: 20201103
  Serious: Yes (Other)
  Sender: FDA-Public Use
  Company Number: GB-ASCEND THERAPEUTICS US, LLC-2088812

PATIENT
  Age: 52 Year
  Sex: Female
  Weight: 59 kg

DRUGS (3)
  1. ESTROGEL [Suspect]
     Active Substance: ESTRADIOL
  2. ESTROGEL [Suspect]
     Active Substance: ESTRADIOL
     Indication: HORMONE REPLACEMENT THERAPY
     Route: 062
     Dates: start: 20200421, end: 20200701
  3. OESTRODOSE (ESTRADIOL)?INDICATION FOR USE: HRT [Suspect]
     Active Substance: ESTRADIOL
     Route: 062
     Dates: start: 20200421, end: 20200701

REACTIONS (8)
  - Product label on wrong product [Unknown]
  - Depressed mood [Unknown]
  - Menopausal symptoms [Recovering/Resolving]
  - Product substitution issue [Unknown]
  - Visual impairment [Unknown]
  - Anxiety [Unknown]
  - Drug ineffective [Unknown]
  - Arthralgia [Recovering/Resolving]

NARRATIVE: CASE EVENT DATE: 20200501
